FAERS Safety Report 5468358-2 (Version None)
Quarter: 2007Q3

REPORT INFORMATION
  Report Type: 
  Country: None (occurrence: None)
  Receive Date: 20070926
  Receipt Date: 20070917
  Transmission Date: 20080115
  Serious: Yes (Death)
  Sender: FDA-Public Use
  Company Number: B0487488A

PATIENT
  Age: 78 Year
  Sex: Female

DRUGS (1)
  1. ARIXTRA [Suspect]
     Indication: PERIPHLEBITIS
     Dosage: 7.5MG PER DAY
     Route: 058

REACTIONS (3)
  - INTENTIONAL DRUG MISUSE [None]
  - INTRA-ABDOMINAL HAEMATOMA [None]
  - OFF LABEL USE [None]
